FAERS Safety Report 19756225 (Version 2)
Quarter: 2021Q3

REPORT INFORMATION
  Report Type: Report from Study
  Country: MX (occurrence: MX)
  Receive Date: 20210827
  Receipt Date: 20210901
  Transmission Date: 20211014
  Serious: Yes (Death)
  Sender: FDA-Public Use
  Company Number: NVSC2021MX194196

PATIENT
  Sex: Female
  Weight: 67 kg

DRUGS (1)
  1. DIOVAN [Suspect]
     Active Substance: VALSARTAN
     Indication: HYPERTENSION
     Dosage: 80 MG, BID (EVERY 12 HRS) (STARTED 16 YEARS APPROXIMATELY)
     Route: 048
     Dates: end: 20210304

REACTIONS (2)
  - Atypical pneumonia [Fatal]
  - Inappropriate schedule of product administration [Unknown]
